FAERS Safety Report 6832046-8 (Version None)
Quarter: 2010Q3

REPORT INFORMATION
  Report Type: 
  Country: None (occurrence: None)
  Receive Date: 20100712
  Receipt Date: 20100707
  Transmission Date: 20110219
  Serious: Yes (Death, Hospitalization)
  Sender: FDA-Public Use
  Company Number: FR-BRISTOL-MYERS SQUIBB COMPANY-15074990

PATIENT
  Age: 36 Year
  Sex: Male

DRUGS (12)
  1. ETOPOPHOS FOR INJ 100 MG [Suspect]
     Indication: LYMPHOMA
     Route: 042
     Dates: start: 20070725, end: 20070808
  2. BICNU [Suspect]
     Indication: LYMPHOMA
     Route: 042
     Dates: start: 20070829, end: 20070901
  3. CYCLOPHOSPHAMIDE [Suspect]
     Indication: LYMPHOMA
     Dosage: ENDOXAN1000MG
     Route: 042
     Dates: start: 20070417, end: 20070530
  4. HOLOXAN [Suspect]
     Indication: LYMPHOMA
     Dosage: 3G
     Route: 042
     Dates: start: 20070725, end: 20070808
  5. ETOPOSIDE [Suspect]
     Indication: LYMPHOMA
     Route: 042
     Dates: start: 20070829, end: 20070901
  6. BLEOMYCINE BELLON [Suspect]
     Indication: LYMPHOMA
     Dosage: 15MG POWDER
     Route: 042
     Dates: start: 20070417, end: 20070530
  7. MABTHERA [Suspect]
     Indication: LYMPHOMA
     Dosage: MABTHERA 500MG.
     Route: 042
     Dates: start: 20070417, end: 20070808
  8. DOXORUBICIN HCL [Suspect]
     Indication: LYMPHOMA
     Dosage: 50MG/25ML
     Route: 042
     Dates: start: 20070417, end: 20070530
  9. ELDISINE [Suspect]
     Indication: LYMPHOMA
     Dosage: ELDISINE 4MG
     Route: 042
     Dates: start: 20070417, end: 20070530
  10. METHOTREXATE MERCK [Suspect]
     Indication: LYMPHOMA
     Dosage: INTRA THECALLY ON17APR,2MAY,30MAY/2007
     Route: 042
     Dates: start: 20070627, end: 20070711
  11. CYTARABINE [Suspect]
     Indication: LYMPHOMA
     Dosage: ARACYTINE 100MG
     Route: 042
     Dates: start: 20070829, end: 20070901
  12. ALKERAN [Suspect]
     Indication: LYMPHOMA
     Dosage: 50MG/10ML
     Dates: start: 20070829, end: 20070901

REACTIONS (8)
  - ASPERGILLOSIS [None]
  - CYTOMEGALOVIRUS INFECTION [None]
  - H1N1 INFLUENZA [None]
  - HAEMODYNAMIC INSTABILITY [None]
  - PNEUMOCYSTIS JIROVECI PNEUMONIA [None]
  - PULMONARY FIBROSIS [None]
  - RESPIRATORY ACIDOSIS [None]
  - RESPIRATORY FAILURE [None]
